FAERS Safety Report 19630920 (Version 1)
Quarter: 2021Q3

REPORT INFORMATION
  Report Type: Report from Study
  Country: ES (occurrence: ES)
  Receive Date: 20210729
  Receipt Date: 20210729
  Transmission Date: 20211014
  Serious: Yes (Other)
  Sender: FDA-Public Use
  Company Number: ES-TAKEDA-2021TUS045166

PATIENT
  Age: 67 Year
  Sex: Male

DRUGS (13)
  1. VIRIREC [Concomitant]
     Indication: ERECTILE DYSFUNCTION
     Dosage: 3 MILLIGRAM, PRN
     Route: 061
     Dates: start: 20190717
  2. TEDUGLUTIDE [Suspect]
     Active Substance: TEDUGLUTIDE
     Dosage: 1.9 MILLIGRAM, 1/WEEK
     Route: 065
     Dates: start: 20210630
  3. FERINJECT [Concomitant]
     Active Substance: FERRIC CARBOXYMALTOSE
     Dosage: 1 GRAM, X1? ONE DOSE
     Route: 042
     Dates: start: 20210712, end: 20210712
  4. TEDUGLUTIDE [Suspect]
     Active Substance: TEDUGLUTIDE
     Indication: SHORT-BOWEL SYNDROME
     Dosage: 3.95 MILLIGRAM, 1/WEEK
     Route: 065
     Dates: start: 20190425
  5. FERINJECT [Concomitant]
     Active Substance: FERRIC CARBOXYMALTOSE
     Indication: IRON DEFICIENCY ANAEMIA
     Dosage: 1 GRAM, MONTHLY
     Route: 042
     Dates: start: 20201211, end: 20210111
  6. METAMIZOLE MAGNESIUM [Concomitant]
     Active Substance: METAMIZOLE MAGNESIUM
     Indication: PAIN
     Dosage: 1 DOSAGE FORM, BID
     Route: 048
     Dates: start: 20200701, end: 20200809
  7. TEDUGLUTIDE [Suspect]
     Active Substance: TEDUGLUTIDE
     Indication: SHORT-BOWEL SYNDROME
     Dosage: 3.95 MILLIGRAM, 1/WEEK
     Route: 065
     Dates: start: 20190425
  8. TEDUGLUTIDE [Suspect]
     Active Substance: TEDUGLUTIDE
     Dosage: 1.9 MILLIGRAM, 1/WEEK
     Route: 065
     Dates: start: 20210630
  9. TEDUGLUTIDE [Suspect]
     Active Substance: TEDUGLUTIDE
     Indication: SHORT-BOWEL SYNDROME
     Dosage: 3.95 MILLIGRAM, 1/WEEK
     Route: 065
     Dates: start: 20190425
  10. TEDUGLUTIDE [Suspect]
     Active Substance: TEDUGLUTIDE
     Indication: SHORT-BOWEL SYNDROME
     Dosage: 3.95 MILLIGRAM, 1/WEEK
     Route: 065
     Dates: start: 20190425
  11. TEDUGLUTIDE [Suspect]
     Active Substance: TEDUGLUTIDE
     Dosage: 1.9 MILLIGRAM, 1/WEEK
     Route: 065
     Dates: start: 20210630
  12. TEDUGLUTIDE [Suspect]
     Active Substance: TEDUGLUTIDE
     Dosage: 1.9 MILLIGRAM, 1/WEEK
     Route: 065
     Dates: start: 20210630
  13. BETAHISTINE HYDROCHLORIDE [Concomitant]
     Active Substance: BETAHISTINE HYDROCHLORIDE
     Indication: VERTIGO
     Dosage: 8 MILLIGRAM, TID
     Route: 048
     Dates: start: 20201212, end: 20201213

REACTIONS (5)
  - Abdominal pain [Recovered/Resolved]
  - Glomerular filtration rate decreased [Recovering/Resolving]
  - Renal failure [Recovered/Resolved]
  - Intestinal haemorrhage [Recovered/Resolved]
  - Vomiting [Recovered/Resolved]

NARRATIVE: CASE EVENT DATE: 20210602
